FAERS Safety Report 23341606 (Version 1)
Quarter: 2023Q4

REPORT INFORMATION
  Report Type: Report from Study
  Country: BR (occurrence: BR)
  Receive Date: 20231227
  Receipt Date: 20231227
  Transmission Date: 20240109
  Serious: Yes (Hospitalization)
  Sender: FDA-Public Use
  Company Number: BR-JNJFOC-20231137664

PATIENT
  Age: 31 Year
  Sex: Female
  Weight: 67 kg

DRUGS (5)
  1. INFLIXIMAB [Suspect]
     Active Substance: INFLIXIMAB
     Indication: Crohn^s disease
     Dosage: 3 AMPOULES OF 10MG EACH
     Route: 041
     Dates: start: 202106
  2. INFLIXIMAB [Suspect]
     Active Substance: INFLIXIMAB
     Dosage: 4 AMPOULES OF 10MG EACH
     Route: 041
     Dates: start: 20230518
  3. INFLIXIMAB [Suspect]
     Active Substance: INFLIXIMAB
     Indication: Product used for unknown indication
     Route: 065
  4. AZATHIOPRINE [Concomitant]
     Active Substance: AZATHIOPRINE
     Dosage: 3 TABLETS PER DAY
     Route: 065
     Dates: start: 20230518
  5. CORTISONE [Concomitant]
     Active Substance: CORTISONE
     Route: 065

REACTIONS (9)
  - Crohn^s disease [Unknown]
  - Illness [Unknown]
  - Oedema [Recovering/Resolving]
  - Blood pressure decreased [Recovering/Resolving]
  - Pyrexia [Unknown]
  - Hypersensitivity [Unknown]
  - Therapeutic response decreased [Unknown]
  - Off label use [Unknown]
  - Influenza [Unknown]

NARRATIVE: CASE EVENT DATE: 20230518
